FAERS Safety Report 6849106-8 (Version None)
Quarter: 2010Q3

REPORT INFORMATION
  Report Type: 
  Country: None (occurrence: None)
  Receive Date: 20100716
  Receipt Date: 20070927
  Transmission Date: 20110219
  Serious: No
  Sender: FDA-Public Use
  Company Number: US-PFIZER INC-2007081647

PATIENT
  Sex: Female
  Weight: 53.6 kg

DRUGS (6)
  1. CHANTIX [Suspect]
     Indication: SMOKING CESSATION THERAPY
     Dates: start: 20070917
  2. PREVACID [Concomitant]
  3. COMBIVENT [Concomitant]
  4. SPIRIVA [Concomitant]
  5. HYDROCHLOROTHIAZIDE [Concomitant]
  6. ATIVAN [Concomitant]

REACTIONS (2)
  - NAUSEA [None]
  - VOMITING [None]
